FAERS Safety Report 6763914-3 (Version None)
Quarter: 2010Q2

REPORT INFORMATION
  Report Type: 
  Country: None (occurrence: None)
  Receive Date: 20100610
  Receipt Date: 20100601
  Transmission Date: 20101027
  Serious: Yes (Other)
  Sender: FDA-Public Use
  Company Number: US-PFIZER INC-2010069404

PATIENT
  Sex: Male

DRUGS (2)
  1. GEODON [Suspect]
     Dosage: UNK
     Route: 030
  2. MULTI-VITAMINS [Concomitant]
     Dosage: UNK

REACTIONS (5)
  - BRADYCARDIA [None]
  - HYPERSENSITIVITY [None]
  - HYPOTONIA [None]
  - PALLOR [None]
  - UNRESPONSIVE TO STIMULI [None]
